FAERS Safety Report 19797845 (Version 3)
Quarter: 2023Q1

REPORT INFORMATION
  Report Type: Report from Study
  Country: US (occurrence: US)
  Receive Date: 20210907
  Receipt Date: 20230117
  Transmission Date: 20230418
  Serious: No
  Sender: FDA-Public Use
  Company Number: US-PFIZER INC-2021223757

PATIENT
  Sex: Female

DRUGS (1)
  1. RELPAX [Suspect]
     Active Substance: ELETRIPTAN HYDROBROMIDE
     Indication: Migraine
     Dosage: 40 MILLIGRAM, PRN (40 MG, AS NEEDED)
     Route: 048

REACTIONS (4)
  - Panic reaction [Unknown]
  - Swelling [Unknown]
  - Migraine [Unknown]
  - Headache [Unknown]
